FAERS Safety Report 7953798-X (Version None)
Quarter: 2011Q4

REPORT INFORMATION
  Report Type: 
  Country: None (occurrence: None)
  Receive Date: 20111202
  Receipt Date: 20111124
  Transmission Date: 20120403
  Serious: Yes (Other)
  Sender: FDA-Public Use
  Company Number: JP-JNJFOC-20111111023

PATIENT
  Age: 60 Year
  Sex: Male

DRUGS (12)
  1. RISPERIDONE [Suspect]
     Route: 030
  2. TRIHEXYPHENIDYL HCL [Suspect]
     Route: 065
  3. RISPERIDONE [Suspect]
     Indication: SCHIZOPHRENIA
     Dosage: P.R.N
     Route: 048
  4. RISPERDAL [Suspect]
     Indication: SCHIZOPHRENIA
     Route: 048
  5. RISPERIDONE [Suspect]
     Indication: SCHIZOPHRENIA
     Route: 030
  6. RISPERIDONE [Suspect]
     Route: 030
  7. RISPERDAL [Suspect]
     Route: 048
  8. FLUNITRAZEPAM [Concomitant]
     Route: 065
  9. RISPERDAL [Suspect]
     Route: 048
  10. ESTAZOLAM [Concomitant]
     Route: 065
  11. RISPERDAL [Suspect]
     Route: 048
  12. TRIHEXYPHENIDYL HCL [Suspect]
     Indication: PRODUCT USED FOR UNKNOWN INDICATION
     Route: 065

REACTIONS (7)
  - ABULIA [None]
  - DEPRESSIVE SYMPTOM [None]
  - DIZZINESS [None]
  - TREMOR [None]
  - IRRITABILITY [None]
  - MASKED FACIES [None]
  - SALIVARY HYPERSECRETION [None]
